FAERS Safety Report 17774740 (Version 1)
Quarter: 2020Q2

REPORT INFORMATION
  Report Type: Spontaneous
  Country: US (occurrence: US)
  Receive Date: 20200513
  Receipt Date: 20200513
  Transmission Date: 20200714
  Serious: No
  Sender: FDA-Public Use
  Company Number: US-TEVA-2020-US-1234229

PATIENT
  Sex: Female

DRUGS (1)
  1. MUPIROCIN OINTMENT [Suspect]
     Active Substance: MUPIROCIN
     Indication: PARONYCHIA
     Dosage: TWICE A DAY EVERY OTHER DAY
     Route: 061
     Dates: start: 20200428, end: 20200503

REACTIONS (6)
  - Wrong schedule [Unknown]
  - Pruritus [Unknown]
  - Dizziness [Unknown]
  - Hypokinesia [Unknown]
  - Off label use [Unknown]
  - Gait disturbance [Unknown]

NARRATIVE: CASE EVENT DATE: 20200504
